FAERS Safety Report 25395456 (Version 1)
Quarter: 2025Q2

REPORT INFORMATION
  Report Type: Report from Study
  Country: PY (occurrence: PY)
  Receive Date: 20250604
  Receipt Date: 20250604
  Transmission Date: 20250717
  Serious: Yes (Death, Hospitalization)
  Sender: ROCHE
  Company Number: PY-ROCHE-10000288621

PATIENT
  Age: 2 Year
  Sex: Male
  Weight: 6.8 kg

DRUGS (2)
  1. EVRYSDI [Suspect]
     Active Substance: RISDIPLAM
     Indication: Spinal muscular atrophy
     Dosage: RISDIPLAM 60MG/80 ML?ROUTE OF ADMIN.: NASOGASTRIC
     Route: 050
  2. EVRYSDI [Suspect]
     Active Substance: RISDIPLAM
     Dosage: RISDIPLAM 60MG/80 ML?ROUTE OF ADMIN.: NASOGASTRIC
     Route: 050
     Dates: start: 20250424, end: 20250528

REACTIONS (8)
  - Asthenia [Not Recovered/Not Resolved]
  - Agitation [Not Recovered/Not Resolved]
  - Skin discolouration [Not Recovered/Not Resolved]
  - Restlessness [Not Recovered/Not Resolved]
  - Cyanosis [Unknown]
  - Pneumonia [Unknown]
  - Oxygen saturation decreased [Unknown]
  - Death [Fatal]

NARRATIVE: CASE EVENT DATE: 20250424
